FAERS Safety Report 25575248 (Version 2)
Quarter: 2025Q4

REPORT INFORMATION
  Report Type: Spontaneous
  Country: US (occurrence: US)
  Receive Date: 20250718
  Receipt Date: 20251202
  Transmission Date: 20260117
  Serious: No
  Sender: LEO PHARM
  Company Number: US-LEO Pharma-381471

PATIENT
  Age: 71 Year
  Sex: Female

DRUGS (2)
  1. ADBRY [Suspect]
     Active Substance: TRALOKINUMAB-LDRM
     Indication: Dermatitis atopic
     Dosage: 600 MG ON DAY 1 THEN AT 300 MG EVERY TWO WEEKS; TREATMENT REPORTED AS ONGOING
     Route: 058
  2. ADBRY [Suspect]
     Active Substance: TRALOKINUMAB-LDRM
     Indication: Dermatitis atopic
     Dosage: 600 MG ON DAY 1 THEN AT 300 MG EVERY TWO WEEKS; TREATMENT REPORTED AS ONGOING
     Route: 058
     Dates: start: 202507

REACTIONS (2)
  - Skin discolouration [Unknown]
  - Pain of skin [Unknown]
